FAERS Safety Report 15150296 (Version 1)
Quarter: 2018Q3

REPORT INFORMATION
  Report Type: Spontaneous
  Country: US (occurrence: US)
  Receive Date: 20180619
  Receipt Date: 20180619
  Transmission Date: 20181010
  Serious: Yes (Life-Threatening)
  Sender: FDA-Public Use
  Company Number: None

PATIENT
  Age: 81 Year
  Sex: Female
  Weight: 80.74 kg

DRUGS (8)
  1. WALGREEN^S EYE MULTIVIT [Concomitant]
  2. EMERGEN?C [Concomitant]
     Active Substance: VITAMINS
  3. HCTZ [Concomitant]
     Active Substance: HYDROCHLOROTHIAZIDE
  4. EPA/DHA/OMEGA 3 [Concomitant]
  5. IRON [Concomitant]
     Active Substance: IRON
  6. OLIVE LEAF XTRACT [Concomitant]
  7. SULFAMETH/TMP 800/160MGM TB [Suspect]
     Active Substance: SULFAMETHOXAZOLE\TRIMETHOPRIM
     Indication: URINARY TRACT INFECTION
     Dosage: ?          QUANTITY:1 DF DOSAGE FORM;?
     Route: 048
  8. VITAMIN C [Concomitant]
     Active Substance: ASCORBIC ACID

REACTIONS (6)
  - Erythema [None]
  - Lip swelling [None]
  - Rash pruritic [None]
  - Anaphylactic shock [None]
  - Sneezing [None]
  - Urinary tract infection [None]

NARRATIVE: CASE EVENT DATE: 20180216
